FAERS Safety Report 15022750 (Version 2)
Quarter: 2018Q2

REPORT INFORMATION
  Report Type: Spontaneous
  Country: JP (occurrence: JP)
  Receive Date: 20180618
  Receipt Date: 20180621
  Transmission Date: 20180711
  Serious: Yes (Hospitalization, Other)
  Sender: FDA-Public Use
  Company Number: JP-PFIZER INC-2018244952

PATIENT
  Age: 7 Year
  Sex: Female

DRUGS (1)
  1. PIPERACILLIN/TAZOBACTAM [Suspect]
     Active Substance: PIPERACILLIN SODIUM\TAZOBACTAM SODIUM
     Indication: ACUTE FOCAL BACTERIAL NEPHRITIS
     Dosage: UNK
     Route: 042

REACTIONS (2)
  - Histiocytosis haematophagic [Recovering/Resolving]
  - Drug hypersensitivity [Recovering/Resolving]
